FAERS Safety Report 8840000 (Version 1)
Quarter: 2012Q4

REPORT INFORMATION
  Report Type: 
  Country: US (occurrence: US)
  Receive Date: 20121015
  Receipt Date: 20121015
  Transmission Date: 20130627
  Serious: No
  Sender: FDA-Public Use
  Company Number: US-PFIZER INC-2012250078

PATIENT
  Age: 69 Year
  Sex: Male
  Weight: 90.7 kg

DRUGS (5)
  1. VIAGRA [Suspect]
     Dosage: UNK
  2. REVATIO [Suspect]
     Indication: PULMONARY HYPERTENSION
     Dosage: 20 mg, three a day
     Route: 048
     Dates: start: 201205
  3. REVATIO [Suspect]
     Dosage: 20 mg, six a day
     Route: 048
  4. REVATIO [Suspect]
     Dosage: 20 mg, UNK nine a day
  5. REVATIO [Suspect]
     Dosage: 20 mg, twelve a week

REACTIONS (1)
  - Spontaneous penile erection [Recovering/Resolving]
